FAERS Safety Report 24709762 (Version 1)
Quarter: 2024Q4

REPORT INFORMATION
  Report Type: Spontaneous
  Country: US (occurrence: US)
  Receive Date: 20241209
  Receipt Date: 20241209
  Transmission Date: 20250115
  Serious: No
  Sender: AUROBINDO
  Company Number: US-AUROBINDO-AUR-APL-2024-049509

PATIENT
  Sex: Male

DRUGS (2)
  1. CARBIDOPA\LEVODOPA [Suspect]
     Active Substance: CARBIDOPA\LEVODOPA
     Indication: Product used for unknown indication
     Dosage: UNK
     Route: 065
  2. INSULIN NOS [Concomitant]
     Active Substance: INSULIN NOS
     Indication: Product used for unknown indication
     Dosage: UNK
     Route: 065

REACTIONS (11)
  - Seborrhoea [Unknown]
  - Irritability [Unknown]
  - Vision blurred [Unknown]
  - Salivary hypersecretion [Unknown]
  - Drooling [Unknown]
  - Pruritus [Unknown]
  - Dyspnoea [Unknown]
  - Cerebral disorder [Unknown]
  - Body temperature increased [Unknown]
  - Dry eye [Unknown]
  - Withdrawal syndrome [Unknown]
